FAERS Safety Report 10819318 (Version 1)
Quarter: 2015Q1

REPORT INFORMATION
  Report Type: Report from Study
  Country: US (occurrence: US)
  Receive Date: 20150218
  Receipt Date: 20150218
  Transmission Date: 20150721
  Serious: Yes (Hospitalization)
  Sender: FDA-Public Use
  Company Number: US-ABBVIE-14K-163-1294746-00

PATIENT
  Age: 14 Year
  Sex: Male

DRUGS (9)
  1. TYLENOL [Concomitant]
     Active Substance: ACETAMINOPHEN
     Indication: PAIN
  2. CIPRO [Suspect]
     Active Substance: CIPROFLOXACIN HYDROCHLORIDE
     Indication: GASTROENTERITIS SALMONELLA
     Route: 065
     Dates: start: 20140920
  3. HUMIRA [Suspect]
     Active Substance: ADALIMUMAB
     Indication: CROHN^S DISEASE
     Route: 065
     Dates: start: 201107
  4. ZYRTEC [Concomitant]
     Active Substance: CETIRIZINE HYDROCHLORIDE
     Indication: HYPERSENSITIVITY
  5. ZOFRAN [Concomitant]
     Active Substance: ONDANSETRON HYDROCHLORIDE
     Indication: NAUSEA
  6. MERCAPTOPURINE. [Concomitant]
     Active Substance: MERCAPTOPURINE
     Indication: CROHN^S DISEASE
  7. FLONASE [Concomitant]
     Active Substance: FLUTICASONE PROPIONATE
     Indication: HYPERSENSITIVITY
     Dosage: UP TO 2 SPRAYS EACH NOSTRIL UP TO 2 TIMES DAILY
  8. TYLENOL [Concomitant]
     Active Substance: ACETAMINOPHEN
     Indication: PYREXIA
  9. TYLENOL [Concomitant]
     Active Substance: ACETAMINOPHEN
     Indication: DISCOMFORT

REACTIONS (14)
  - Hypoaesthesia [Recovered/Resolved]
  - Culture stool positive [Unknown]
  - Injection site papule [Unknown]
  - Eye pruritus [Recovered/Resolved]
  - Injection site pain [Unknown]
  - Wrong technique in drug usage process [Unknown]
  - Device issue [Unknown]
  - Gastroenteritis salmonella [Recovered/Resolved]
  - Injection site swelling [Recovered/Resolved]
  - Drug ineffective [Unknown]
  - Ocular hyperaemia [Recovered/Resolved]
  - Lacrimation increased [Not Recovered/Not Resolved]
  - Injection site rash [Recovered/Resolved]
  - Injection site erythema [Recovered/Resolved]

NARRATIVE: CASE EVENT DATE: 20140920
